FAERS Safety Report 17106507 (Version 6)
Quarter: 2020Q2

REPORT INFORMATION
  Report Type: Spontaneous
  Country: US (occurrence: US)
  Receive Date: 20191203
  Receipt Date: 20200604
  Transmission Date: 20200713
  Serious: No
  Sender: FDA-Public Use
  Company Number: US-PFIZER INC-2018510406

PATIENT
  Age: 60 Year
  Sex: Female
  Weight: 136 kg

DRUGS (11)
  1. ALLOPURINOL. [Concomitant]
     Active Substance: ALLOPURINOL
     Dosage: 300 MG, DAILY
     Route: 048
  2. BUMETANIDE ACTAVIS [Concomitant]
     Dosage: 2 MG, DAILY
     Route: 048
  3. LYRICA [Suspect]
     Active Substance: PREGABALIN
     Indication: GENITAL CANCER MALE
     Dosage: 200 MG, TWICE A DAY (TWO 100 MG CAPSULES, TWICE A DAY)
     Route: 048
     Dates: start: 20160806
  4. LISINOPRIL [LISINOPRIL DIHYDRATE] [Concomitant]
     Dosage: 40 MG, DAILY
     Route: 048
  5. METFORMIN [Concomitant]
     Active Substance: METFORMIN HYDROCHLORIDE
     Dosage: 100 MG, 1X/DAY
     Route: 048
  6. LYRICA [Suspect]
     Active Substance: PREGABALIN
     Dosage: 100 MG, 3X/DAY
     Route: 048
  7. VITAMIN B12 [Concomitant]
     Active Substance: CYANOCOBALAMIN
     Dosage: 1 DF, 2X/DAY (5,000 MCG-100 MCG )
     Route: 060
  8. TRAMADOL [TRAMADOL HYDROCHLORIDE] [Concomitant]
     Active Substance: TRAMADOL HYDROCHLORIDE
     Dosage: 50 MG, AS NEEDED
     Route: 048
  9. VITAMIN D3 [Concomitant]
     Active Substance: CHOLECALCIFEROL
     Dosage: UNK
  10. AMMONIUM LACTATE. [Concomitant]
     Active Substance: AMMONIUM LACTATE
     Dosage: UNK
  11. DILTIAZEM CD [Concomitant]
     Active Substance: DILTIAZEM
     Dosage: 180 MG, DAILY
     Route: 048

REACTIONS (3)
  - Off label use [Unknown]
  - Product use in unapproved indication [Unknown]
  - Pain [Not Recovered/Not Resolved]
